FAERS Safety Report 10697659 (Version 1)
Quarter: 2014Q4

REPORT INFORMATION
  Report Type: Spontaneous
  Country: US (occurrence: None)
  Receive Date: 20141223
  Receipt Date: 20141223
  Transmission Date: 20150529
  Serious: No
  Sender: FDA-Public Use
  Company Number: 1000071483

PATIENT
  Age: 65 Year
  Sex: Female

DRUGS (4)
  1. LINZESS [Suspect]
     Active Substance: LINACLOTIDE
     Indication: CONSTIPATION
     Dosage: 145MCG (145 MCG, 1 IN 1 D), ORAL
     Route: 048
     Dates: start: 201409, end: 20141008
  2. LISINOPRIL. [Concomitant]
     Active Substance: LISINOPRIL
  3. LIPITOR [Concomitant]
     Active Substance: ATORVASTATIN CALCIUM
  4. EFFEXOR (VENLAFAXINE HYDROCHLORIDE) [Concomitant]

REACTIONS (4)
  - Headache [None]
  - Intentional product misuse [None]
  - Drug ineffective [None]
  - Vomiting [None]

NARRATIVE: CASE EVENT DATE: 201409
